FAERS Safety Report 5566869-2 (Version None)
Quarter: 2007Q4

REPORT INFORMATION
  Report Type: 
  Country: None (occurrence: None)
  Receive Date: 20071214
  Receipt Date: 20071211
  Transmission Date: 20080405
  Serious: Yes (Death)
  Sender: FDA-Public Use
  Company Number: 163-21880-07040501

PATIENT
  Age: 82 Year
  Sex: Female

DRUGS (2)
  1. REVLIMID [Suspect]
     Indication: MULTIPLE MYELOMA
     Dosage: 25 MG, QD X14 DAYS, ORAL;  25 MG, ORAL
     Route: 048
     Dates: start: 20070315, end: 20070401
  2. REVLIMID [Suspect]
     Indication: MULTIPLE MYELOMA
     Dosage: 25 MG, QD X14 DAYS, ORAL;  25 MG, ORAL
     Route: 048
     Dates: start: 20070402, end: 20070404

REACTIONS (5)
  - DISEASE PROGRESSION [None]
  - MALAISE [None]
  - MULTIPLE MYELOMA [None]
  - MUSCLE SPASMS [None]
  - MUSCLE TWITCHING [None]
